FAERS Safety Report 14432976 (Version 2)
Quarter: 2018Q2

REPORT INFORMATION
  Report Type: Spontaneous
  Country: US (occurrence: US)
  Receive Date: 20180124
  Receipt Date: 20180406
  Transmission Date: 20180711
  Serious: No
  Sender: FDA-Public Use
  Company Number: US-ASTRAZENECA-2017SF33433

PATIENT
  Sex: Female
  Weight: 81.6 kg

DRUGS (1)
  1. TUDORZA PRESSAIR [Suspect]
     Active Substance: ACLIDINIUM BROMIDE
     Route: 055
     Dates: start: 201711

REACTIONS (4)
  - Memory impairment [Unknown]
  - Malaise [Unknown]
  - Condition aggravated [Unknown]
  - Device malfunction [Unknown]
